FAERS Safety Report 11422602 (Version 1)
Quarter: 2015Q3

REPORT INFORMATION
  Report Type: Spontaneous
  Country: GB (occurrence: GB)
  Receive Date: 20150827
  Receipt Date: 20150827
  Transmission Date: 20151125
  Serious: Yes (Hospitalization, Other)
  Sender: FDA-Public Use
  Company Number: GB-WATSON-2015-18146

PATIENT
  Age: 48 Year
  Sex: Female

DRUGS (1)
  1. ANASTROZOLE (UNKNOWN) [Suspect]
     Active Substance: ANASTROZOLE
     Indication: BONE MARROW INFILTRATION
     Dosage: 1 MG, DAILY
     Route: 065
     Dates: start: 201305

REACTIONS (2)
  - Steatohepatitis [Recovered/Resolved]
  - Jaundice [Recovered/Resolved]

NARRATIVE: CASE EVENT DATE: 201308
